FAERS Safety Report 6212996-6 (Version None)
Quarter: 2009Q2

REPORT INFORMATION
  Report Type: 
  Country: None (occurrence: None)
  Receive Date: 20090603
  Receipt Date: 20090527
  Transmission Date: 20091009
  Serious: Yes (Other)
  Sender: FDA-Public Use
  Company Number: US-GILEAD-2009-0022171

PATIENT
  Sex: Female

DRUGS (15)
  1. LETAIRIS [Suspect]
     Indication: PULMONARY ARTERIAL HYPERTENSION
     Dates: start: 20090501, end: 20090516
  2. SILDENAFIL CITRATE [Concomitant]
  3. LASIX [Concomitant]
  4. SPIRIVA [Concomitant]
  5. ADVAIR HFA [Concomitant]
  6. SYNTHROID [Concomitant]
  7. PLAVIX [Concomitant]
  8. ASPIRIN [Concomitant]
  9. VOLTAREN [Concomitant]
  10. TRILEPTAL [Concomitant]
  11. PROTONIX [Concomitant]
  12. NORCO [Concomitant]
  13. XANAX [Concomitant]
  14. POTASSIUM CHLORIDE [Concomitant]
  15. RESTASIS [Concomitant]
     Route: 047

REACTIONS (4)
  - BLOOD PRESSURE DECREASED [None]
  - EPISTAXIS [None]
  - OEDEMA PERIPHERAL [None]
  - OXYGEN SATURATION DECREASED [None]
